FAERS Safety Report 12959029 (Version 1)
Quarter: 2016Q4

REPORT INFORMATION
  Report Type: Spontaneous
  Country: US (occurrence: US)
  Receive Date: 20161117
  Receipt Date: 20161117
  Transmission Date: 20170207
  Serious: No
  Sender: FDA-Public Use
  Company Number: None

PATIENT
  Age: 23 Year
  Sex: Female

DRUGS (3)
  1. ETHINYL ESTRADIOL [Concomitant]
     Active Substance: ETHINYL ESTRADIOL
  2. LEVONORGESTREL. [Concomitant]
     Active Substance: LEVONORGESTREL
  3. ACETAMINOPHEN. [Suspect]
     Active Substance: ACETAMINOPHEN
     Indication: SUICIDE ATTEMPT
     Dosage: 12 X 325 MG ONCE PO
     Route: 048
     Dates: start: 20160830

REACTIONS (5)
  - Affective disorder [None]
  - Personal relationship issue [None]
  - Suicide attempt [None]
  - Stress [None]
  - Incorrect dose administered [None]

NARRATIVE: CASE EVENT DATE: 20160830
